FAERS Safety Report 5198900-0 (Version None)
Quarter: 2006Q4

REPORT INFORMATION
  Report Type: 
  Country: None (occurrence: None)
  Receive Date: 20060921
  Receipt Date: 20060309
  Transmission Date: 20070319
  Serious: Yes (Other)
  Sender: FDA-Public Use
  Company Number: 2006034955

PATIENT
  Age: 67 Year
  Sex: Male
  Weight: 82.1011 kg

DRUGS (8)
  1. ZYRTEC [Suspect]
     Indication: RHINITIS ALLERGIC
     Dates: end: 20060101
  2. TRUVADA [Concomitant]
  3. BACLOFEN [Concomitant]
  4. PEPCID [Concomitant]
  5. NEXIUM [Concomitant]
  6. AZULFIDINE [Concomitant]
  7. OXYCODONE HCL [Concomitant]
  8. NEVIRAPINE [Concomitant]

REACTIONS (2)
  - AGGRESSION [None]
  - SUICIDAL IDEATION [None]
